FAERS Safety Report 6359312-7 (Version None)
Quarter: 2009Q3

REPORT INFORMATION
  Report Type: 
  Country: None (occurrence: None)
  Receive Date: 20090917
  Receipt Date: 20090911
  Transmission Date: 20100115
  Serious: Yes (Other)
  Sender: FDA-Public Use
  Company Number: FR-ROCHE-656368

PATIENT
  Age: 15 Year
  Sex: Female

DRUGS (26)
  1. RIVOTRIL [Suspect]
     Indication: AGITATION
     Route: 048
     Dates: start: 20090518, end: 20090607
  2. NOXAFIL [Interacting]
     Indication: ANTIFUNGAL PROPHYLAXIS
     Route: 048
     Dates: start: 20090530, end: 20090607
  3. NOXAFIL [Interacting]
     Route: 048
     Dates: start: 20090630
  4. LUTENYL [Interacting]
     Indication: MENORRHAGIA
     Route: 048
     Dates: start: 20081111, end: 20090607
  5. CYCLOSPORINE [Interacting]
     Indication: PROPHYLAXIS AGAINST TRANSPLANT REJECTION
     Route: 048
     Dates: start: 20090421, end: 20090607
  6. FUNGIZONE [Concomitant]
     Dates: start: 20090528
  7. POLARAMINE [Concomitant]
     Dates: start: 20090528
  8. FORTUM [Concomitant]
     Dates: start: 20090601, end: 20090605
  9. INSULATARD [Concomitant]
     Dates: start: 20090601
  10. NOVORAPID [Concomitant]
     Dates: start: 20090604
  11. LAMICTAL [Concomitant]
     Dates: start: 20090409
  12. URSO FALK [Concomitant]
     Dates: start: 20090409
  13. KEPPRA [Concomitant]
     Dates: start: 20090409
  14. FORLAX [Concomitant]
     Dates: start: 20090512
  15. ZOVIRAX [Concomitant]
     Dates: start: 20090528
  16. BACTRIM [Concomitant]
     Dates: start: 20090528
  17. ORACILLINE [Concomitant]
     Dates: start: 20090528
  18. CELLCEPT [Concomitant]
     Dates: start: 20090511, end: 20090619
  19. MOPRAL [Concomitant]
     Dates: start: 20090528, end: 20090610
  20. MAG 2 [Concomitant]
     Dates: start: 20090505, end: 20090619
  21. NICARDIPINE HCL [Concomitant]
     Dates: start: 20090511, end: 20090618
  22. VITAMIN B1/VITAMIN B6 [Concomitant]
     Dates: start: 20090514, end: 20090619
  23. LOVENOX [Concomitant]
     Dates: start: 20090119
  24. RISPERDAL [Concomitant]
     Dates: start: 20090515
  25. SOLU-MEDROL [Concomitant]
     Dates: start: 20090515, end: 20090614
  26. SOLU-MEDROL [Concomitant]
     Dates: start: 20090615, end: 20090618

REACTIONS (2)
  - DRUG INTERACTION [None]
  - HYPERTRIGLYCERIDAEMIA [None]
